FAERS Safety Report 9330797 (Version 2)
Quarter: 2013Q3

REPORT INFORMATION
  Report Type: Report from Study
  Country: CA (occurrence: CA)
  Receive Date: 20130605
  Receipt Date: 20130823
  Transmission Date: 20140515
  Serious: Yes (Hospitalization, Other)
  Sender: FDA-Public Use
  Company Number: CA-MILLENNIUM PHARMACEUTICALS, INC.-2013-04119

PATIENT
  Sex: 0

DRUGS (1)
  1. VELCADE [Suspect]
     Indication: AMYLOIDOSIS
     Dosage: 3.5 MG, UNK
     Route: 058
     Dates: start: 20130327

REACTIONS (3)
  - Hospitalisation [Unknown]
  - Anaemia [Unknown]
  - Off label use [Unknown]
